FAERS Safety Report 8926916 (Version 1)
Quarter: 2012Q4

REPORT INFORMATION
  Report Type: 
  Country: US (occurrence: US)
  Receive Date: 20121127
  Receipt Date: 20121127
  Transmission Date: 20130627
  Serious: No
  Sender: FDA-Public Use
  Company Number: US-JNJFOC-20110208278

PATIENT
  Sex: Male
  Weight: 117.94 kg

DRUGS (35)
  1. DURAGESIC [Suspect]
     Indication: PAIN
     Route: 062
     Dates: end: 2009
  2. DURAGESIC [Suspect]
     Indication: PAIN
     Route: 062
     Dates: start: 2003
  3. DURAGESIC [Suspect]
     Indication: PAIN
     Route: 062
  4. DURAGESIC [Suspect]
     Indication: PAIN
     Route: 062
  5. DURAGESIC [Suspect]
     Indication: PAIN
     Route: 062
  6. DURAGESIC [Suspect]
     Indication: INTERVERTEBRAL DISC DEGENERATION
     Route: 062
  7. DURAGESIC [Suspect]
     Indication: INTERVERTEBRAL DISC DEGENERATION
     Route: 062
  8. DURAGESIC [Suspect]
     Indication: INTERVERTEBRAL DISC DEGENERATION
     Route: 062
  9. DURAGESIC [Suspect]
     Indication: INTERVERTEBRAL DISC DEGENERATION
     Route: 062
     Dates: start: 2003
  10. DURAGESIC [Suspect]
     Indication: INTERVERTEBRAL DISC DEGENERATION
     Route: 062
     Dates: end: 2009
  11. DURAGESIC [Suspect]
     Indication: NEUROPATHY PERIPHERAL
     Route: 062
  12. DURAGESIC [Suspect]
     Indication: NEUROPATHY PERIPHERAL
     Route: 062
  13. DURAGESIC [Suspect]
     Indication: NEUROPATHY PERIPHERAL
     Route: 062
     Dates: start: 2003
  14. DURAGESIC [Suspect]
     Indication: NEUROPATHY PERIPHERAL
     Route: 062
  15. DURAGESIC [Suspect]
     Indication: NEUROPATHY PERIPHERAL
     Route: 062
     Dates: end: 2009
  16. UNSPECIFIED FENTANYL TRANSDERMAL SYSTEM [Suspect]
     Indication: PAIN
     Route: 062
  17. UNSPECIFIED FENTANYL TRANSDERMAL SYSTEM [Suspect]
     Indication: INTERVERTEBRAL DISC DEGENERATION
     Route: 062
  18. DURAGESIC [Suspect]
     Indication: PAIN
     Route: 062
  19. DURAGESIC [Suspect]
     Indication: INTERVERTEBRAL DISC DEGENERATION
     Route: 062
  20. NITROSTAT [Concomitant]
     Indication: CHEST PAIN
     Route: 060
  21. PERCOCET [Concomitant]
     Indication: BREAKTHROUGH PAIN
     Dosage: 5-325 mg
     Route: 048
  22. METOPROLOL [Concomitant]
     Indication: BLOOD PRESSURE
     Route: 048
  23. INSULIN [Concomitant]
     Indication: DIABETES MELLITUS
     Dosage: 80-100 units
     Route: 065
  24. TRAVATAN [Concomitant]
     Indication: GLAUCOMA
     Route: 031
  25. ELAVIL [Concomitant]
     Indication: NEUROPATHY PERIPHERAL
     Route: 048
  26. LYRICA [Concomitant]
     Indication: NEUROPATHY PERIPHERAL
     Route: 048
  27. LYRICA [Concomitant]
     Indication: NEUROPATHY PERIPHERAL
     Route: 048
  28. LEVOTHYROXINE [Concomitant]
     Indication: THYROID DISORDER
     Route: 048
  29. OMEPRAZOLE [Concomitant]
     Indication: GASTROOESOPHAGEAL REFLUX DISEASE
     Route: 048
  30. COLACE [Concomitant]
     Indication: CONSTIPATION
     Route: 048
  31. LANTUS INSULIN [Concomitant]
     Indication: PRODUCT USED FOR UNKNOWN INDICATION
     Dosage: evening
     Route: 058
  32. VITAMIN [Concomitant]
     Indication: PRODUCT USED FOR UNKNOWN INDICATION
     Route: 065
  33. FLONASE [Concomitant]
     Indication: HYPERSENSITIVITY
     Route: 045
  34. WARFARIN [Concomitant]
     Indication: THROMBOSIS
     Dosage: 5 days a week
     Route: 048
  35. WARFARIN [Concomitant]
     Indication: THROMBOSIS
     Dosage: 5 days a week
     Route: 048

REACTIONS (8)
  - Intervertebral disc degeneration [Not Recovered/Not Resolved]
  - Skin irritation [Recovered/Resolved]
  - Pain [Recovered/Resolved]
  - Thermal burn [Recovered/Resolved]
  - Device leakage [Unknown]
  - Wrong technique in drug usage process [Unknown]
  - Product quality issue [Unknown]
  - Motor dysfunction [Not Recovered/Not Resolved]
